FAERS Safety Report 25401502 (Version 2)
Quarter: 2025Q2

REPORT INFORMATION
  Report Type: Spontaneous
  Country: US (occurrence: US)
  Receive Date: 20250605
  Receipt Date: 20250611
  Transmission Date: 20250717
  Serious: No
  Sender: TRIS PHARMA, INC.
  Company Number: US-TRIS PHARMA, INC.-25US011993

PATIENT

DRUGS (3)
  1. ONYDA XR [Interacting]
     Active Substance: CLONIDINE HYDROCHLORIDE
     Indication: Attention deficit hyperactivity disorder
     Dosage: 1 MILLILITRE, QD
     Route: 048
     Dates: start: 20250312
  2. ONYDA XR [Interacting]
     Active Substance: CLONIDINE HYDROCHLORIDE
     Dosage: 1 MILLILITRE, QD
     Route: 048
     Dates: start: 20250313, end: 20250314
  3. CLONIDINE [Concomitant]
     Active Substance: CLONIDINE
     Indication: Attention deficit hyperactivity disorder

REACTIONS (1)
  - Rash [Not Recovered/Not Resolved]
